FAERS Safety Report 13995661 (Version 1)
Quarter: 2017Q3

REPORT INFORMATION
  Report Type: Spontaneous
  Country: US (occurrence: US)
  Receive Date: 20170921
  Receipt Date: 20170921
  Transmission Date: 20171128
  Serious: No
  Sender: FDA-Public Use
  Company Number: US-PFIZER INC-2017405480

PATIENT
  Age: 57 Year
  Sex: Female
  Weight: 65.77 kg

DRUGS (9)
  1. CYCLOBENZAPRINE. [Concomitant]
     Active Substance: CYCLOBENZAPRINE
     Indication: INTERVERTEBRAL DISC PROTRUSION
     Dosage: 10MG
  2. DIM PLUS [Concomitant]
     Indication: BLOOD OESTROGEN ABNORMAL
     Dosage: 2 TABLETS EVERYDAY
  3. MEMORY 500 [Concomitant]
     Indication: COGNITIVE DISORDER
     Dosage: 1 TABLET
  4. VENLAFAXINE HCL [Suspect]
     Active Substance: VENLAFAXINE HYDROCHLORIDE
     Dosage: 37.5MG, TABLETS, BY MOUTH, ONCE A DAY
     Route: 048
  5. RIZATRIPTAN. [Concomitant]
     Active Substance: RIZATRIPTAN
     Indication: MIGRAINE
     Dosage: 10MG DISSOLVABLE TABLET
  6. NEXIUM [Concomitant]
     Active Substance: ESOMEPRAZOLE MAGNESIUM
     Indication: GASTROOESOPHAGEAL REFLUX DISEASE
     Dosage: 40MG
  7. VENLAFAXINE HCL [Suspect]
     Active Substance: VENLAFAXINE HYDROCHLORIDE
     Indication: HOT FLUSH
     Dosage: UNK
     Route: 048
  8. NEXIUM [Concomitant]
     Active Substance: ESOMEPRAZOLE MAGNESIUM
     Indication: DYSPEPSIA
  9. V-ZYMES [Concomitant]
     Indication: DYSPEPSIA
     Dosage: 1 CAPSULE

REACTIONS (3)
  - Drug ineffective for unapproved indication [Unknown]
  - Irritability [Unknown]
  - Withdrawal syndrome [Unknown]
